FAERS Safety Report 19505476 (Version 1)
Quarter: 2021Q3

REPORT INFORMATION
  Report Type: Spontaneous
  Country: DE (occurrence: DE)
  Receive Date: 20210708
  Receipt Date: 20210708
  Transmission Date: 20211014
  Serious: Yes (Hospitalization)
  Sender: FDA-Public Use
  Company Number: DE-TEVA-2021-DE-1929563

PATIENT
  Age: 61 Year
  Sex: Female

DRUGS (12)
  1. VITAMIN B12 AAA 1000MIKROGRAMM [Concomitant]
     Dosage: 1 MG / ML, EVERY 3 MONTHS,
     Route: 032
  2. MOXONIDIN [Concomitant]
     Active Substance: MOXONIDINE
     Dosage: .3 MILLIGRAM DAILY;   0?0?1?0,
     Route: 048
  3. FOLSAURE [Concomitant]
     Active Substance: FOLIC ACID
     Dosage: .4 MILLIGRAM DAILY;  1?0?0?0,
     Route: 048
  4. HYDROCHLOROTHIAZID [Concomitant]
     Active Substance: HYDROCHLOROTHIAZIDE
     Dosage: 25 MILLIGRAM DAILY;  1?0?0?0,
     Route: 048
  5. LEVOTHYROXIN?NATRIUM [Concomitant]
     Active Substance: LEVOTHYROXINE SODIUM
     Dosage: 75 MICROGRAM DAILY;   1?0?0?0,
     Route: 048
  6. SIMVASTATIN. [Concomitant]
     Active Substance: SIMVASTATIN
     Dosage: 20 MILLIGRAM DAILY;   0?0?1?0,
     Route: 048
  7. VALSARTAN. [Concomitant]
     Active Substance: VALSARTAN
     Dosage: .5 DOSAGE FORMS DAILY; 160 MG, 0.5?0?0?0,
     Route: 048
  8. CARBOPLATIN. [Suspect]
     Active Substance: CARBOPLATIN
     Dosage: ACCORDING TO THE SCHEME,
     Route: 042
  9. ACETYLSALICYLSAURE [Suspect]
     Active Substance: ASPIRIN
     Dosage: 100 MILLIGRAM DAILY;   0?1?0?0,
     Route: 048
  10. METOPROLOL. [Concomitant]
     Active Substance: METOPROLOL
     Dosage: 180 MILLIGRAM DAILY;  1?0?1?0,
     Route: 048
  11. PEMETREXED. [Suspect]
     Active Substance: PEMETREXED
     Dosage: ACCORDING TO THE SCHEME,
     Route: 042
  12. PANTOPRAZOL [Concomitant]
     Active Substance: PANTOPRAZOLE SODIUM
     Dosage: 20 MILLIGRAM DAILY;   1?0?0?0,
     Route: 048

REACTIONS (1)
  - Epistaxis [Unknown]
